FAERS Safety Report 19195152 (Version 4)
Quarter: 2021Q3

REPORT INFORMATION
  Report Type: Spontaneous
  Country: JP (occurrence: JP)
  Receive Date: 20210429
  Receipt Date: 20210816
  Transmission Date: 20211014
  Serious: Yes (Death, Life-Threatening, Hospitalization)
  Sender: FDA-Public Use
  Company Number: JP-ASTRAZENECA-2021A348610

PATIENT
  Age: 65 Year
  Sex: Male
  Weight: 52 kg

DRUGS (24)
  1. FEBURIC [Concomitant]
     Active Substance: FEBUXOSTAT
     Indication: HYPERURICAEMIA
     Dosage: AFTER BREAKFAST
     Route: 048
  2. ASTOMIN [Concomitant]
     Dosage: AFTER EACH MEALS
     Route: 048
  3. SOLANAX [Concomitant]
     Active Substance: ALPRAZOLAM
     Dosage: AT THE TIME OF QUEASY FEELING
     Route: 048
     Dates: end: 20210408
  4. SOLANAX [Concomitant]
     Active Substance: ALPRAZOLAM
     Dosage: BEFORE EACH MEALS
     Route: 048
     Dates: start: 20210410
  5. MIYA?BM [Concomitant]
     Active Substance: CLOSTRIDIUM BUTYRICUM SPORES STRAIN M-55
     Dosage: DOSE UNKNOWN, AFTER EACH MEALS
     Route: 048
  6. AMLODIPINE [Concomitant]
     Active Substance: AMLODIPINE BESYLATE
     Dosage: DOSE UNKNOWN
     Route: 065
  7. CARBOPLATIN. [Concomitant]
     Active Substance: CARBOPLATIN
     Indication: SMALL CELL LUNG CANCER
     Route: 065
     Dates: start: 20210401, end: 20210401
  8. ENTECAVIR HYDRATE [Concomitant]
     Indication: HEPATITIS B
     Dosage: 2 HOURS AFTER LUNCH
     Route: 048
  9. SOLANAX [Concomitant]
     Active Substance: ALPRAZOLAM
     Dosage: BEFORE DINNER
     Route: 048
     Dates: start: 20210409, end: 20210409
  10. WYPAX [Concomitant]
     Active Substance: LORAZEPAM
     Dosage: AT THE TIME OF QUEASY FEELING
     Route: 048
  11. DEXART [Concomitant]
     Active Substance: DEXAMETHASONE SODIUM PHOSPHATE
     Route: 041
     Dates: start: 20210401
  12. NATRIX [Concomitant]
     Active Substance: INDAPAMIDE
     Dosage: DOSE UNKNOWN
     Route: 065
  13. METOCLOPRAMIDE. [Concomitant]
     Active Substance: METOCLOPRAMIDE
     Dosage: AT THE TIME OF QUEASY FEELING
     Route: 048
  14. ISOTONIC SODIUM CHLORIDE SOLUTION [Concomitant]
     Active Substance: SODIUM CHLORIDE
     Route: 041
     Dates: start: 20210401
  15. OMEPRAZOLE. [Concomitant]
     Active Substance: OMEPRAZOLE
     Dosage: AFTER BREAKFAST
     Route: 048
  16. BISOPROLOL FUMARATE. [Concomitant]
     Active Substance: BISOPROLOL FUMARATE
     Indication: HYPERTENSION
     Dosage: AFTER BREAKFAST
     Route: 048
  17. GRANISETRON [Concomitant]
     Active Substance: GRANISETRON
     Route: 041
     Dates: start: 20210401
  18. IMFINZI [Suspect]
     Active Substance: DURVALUMAB
     Indication: SMALL CELL LUNG CANCER
     Route: 041
     Dates: start: 20210401
  19. ETOPOSIDE. [Concomitant]
     Active Substance: ETOPOSIDE
     Indication: SMALL CELL LUNG CANCER
     Dosage: DOSE UNKNOWN, DAY 1, 2, AND 3 OF EACH CYCLE
     Route: 065
     Dates: start: 20210401, end: 20210403
  20. ASTOMIN [Concomitant]
     Dosage: AT THE TIME OF SEVERE COUGHING
     Route: 048
  21. OLANZAPINE. [Concomitant]
     Active Substance: OLANZAPINE
     Dosage: BEFORE BEDTIME
     Route: 048
  22. AZILVA [Concomitant]
     Active Substance: AZILSARTAN KAMEDOXOMIL
     Dosage: DOSE UNKNOWN
     Route: 065
  23. OMEPRAZOLE. [Concomitant]
     Active Substance: OMEPRAZOLE
     Dosage: NUMBER OF SEPARATE DOSAGES UNKNOWN
     Route: 065
     Dates: start: 20210401
  24. APREPITANT. [Concomitant]
     Active Substance: APREPITANT
     Dosage: AFTER BREAKFAST
     Route: 048
     Dates: end: 20210402

REACTIONS (4)
  - Myocardial infarction [Fatal]
  - Neutrophil count decreased [Recovered/Resolved]
  - Rash [Recovered/Resolved]
  - Vomiting [Recovered/Resolved]

NARRATIVE: CASE EVENT DATE: 20210404
